FAERS Safety Report 7513186-7 (Version None)
Quarter: 2011Q2

REPORT INFORMATION
  Report Type: 
  Country: None (occurrence: None)
  Receive Date: 20110531
  Receipt Date: 20110520
  Transmission Date: 20111010
  Serious: Yes (Hospitalization)
  Sender: FDA-Public Use
  Company Number: FR-ASTRAZENECA-2011SE31813

PATIENT
  Age: 27496 Day
  Sex: Female

DRUGS (7)
  1. ACETAMINOPHEN [Concomitant]
     Route: 048
  2. NEXIUM [Suspect]
     Route: 048
     Dates: start: 20110119, end: 20110131
  3. PROTELOS [Concomitant]
     Route: 048
  4. LANSOPRAZOLE [Concomitant]
     Route: 048
     Dates: start: 20110131
  5. CALCIDOSE VITAMINE D [Concomitant]
     Route: 048
  6. LANSOPRAZOLE [Concomitant]
     Route: 048
     Dates: end: 20110119
  7. DAFLON [Concomitant]
     Route: 048

REACTIONS (2)
  - NEUTROPENIA [None]
  - LYMPHOPENIA [None]
